FAERS Safety Report 20152096 (Version 1)
Quarter: 2021Q4

REPORT INFORMATION
  Report Type: Spontaneous
  Country: CA (occurrence: CA)
  Receive Date: 20211206
  Receipt Date: 20211206
  Transmission Date: 20220303
  Serious: Yes (Hospitalization)
  Sender: FDA-Public Use
  Company Number: CA-TEVA-2021-CA-1983503

PATIENT
  Age: 85 Year
  Sex: Female

DRUGS (1)
  1. ATENOLOL [Interacting]
     Active Substance: ATENOLOL
     Indication: Product used for unknown indication
     Route: 065

REACTIONS (4)
  - Cardioactive drug level increased [Unknown]
  - Drug clearance decreased [Unknown]
  - Hypotension [Unknown]
  - Drug-disease interaction [Unknown]
